FAERS Safety Report 10925245 (Version 2)
Quarter: 2015Q3

REPORT INFORMATION
  Report Type: Spontaneous
  Country: US (occurrence: None)
  Receive Date: 20150129
  Receipt Date: 20150629
  Transmission Date: 20151125
  Serious: Yes (Hospitalization)
  Sender: FDA-Public Use
  Company Number: A-NJ2014-106409

PATIENT
  Age: 65 Year
  Sex: Female

DRUGS (12)
  1. METOPROLOL SUCCINATE. [Concomitant]
     Active Substance: METOPROLOL SUCCINATE
  2. ADVAIR DISKUS [Concomitant]
     Active Substance: FLUTICASONE PROPIONATE\SALMETEROL XINAFOATE
  3. RENVELA [Concomitant]
     Active Substance: SEVELAMER CARBONATE
  4. HYDRALAZINE [Concomitant]
     Active Substance: HYDRALAZINE HYDROCHLORIDE
  5. ADCIRCA [Concomitant]
     Active Substance: TADALAFIL
  6. RESTORIL [Concomitant]
     Active Substance: TEMAZEPAM
  7. COMBIVENT (IPRATROPIUM BROMIDE, SALBUTAMOL SULFATE) [Concomitant]
  8. TEMAZEPAM. [Concomitant]
     Active Substance: TEMAZEPAM
  9. NEXIUM [Concomitant]
     Active Substance: ESOMEPRAZOLE MAGNESIUM
  10. NOVOLIN (INSULIN HUMAN, INSULIN HUMAN INJECTION, ISOPHANE) [Concomitant]
  11. OPSUMIT [Suspect]
     Active Substance: MACITENTAN
     Indication: PULMONARY HYPERTENSION
     Route: 048
     Dates: start: 20140618
  12. NOVOLOG [Concomitant]
     Active Substance: INSULIN ASPART

REACTIONS (1)
  - Hypotension [None]

NARRATIVE: CASE EVENT DATE: 20140928
